FAERS Safety Report 5932287-8 (Version None)
Quarter: 2008Q4

REPORT INFORMATION
  Report Type: 
  Country: None (occurrence: None)
  Receive Date: 20081023
  Receipt Date: 20081010
  Transmission Date: 20090506
  Serious: No
  Sender: FDA-Public Use
  Company Number: 2008-185296-NL

PATIENT
  Age: 79 Year
  Sex: Female

DRUGS (5)
  1. PANCREATIN [Suspect]
     Dosage: DF
  2. INSULIN [Suspect]
     Dosage: DF
  3. IRON [Concomitant]
  4. POTASSIUM CHLORIDE [Concomitant]
  5. LEVOTHYROXINE SODIUM [Concomitant]

REACTIONS (5)
  - ASTHENIA [None]
  - CONFUSIONAL STATE [None]
  - DECREASED APPETITE [None]
  - INTESTINAL PERFORATION [None]
  - PANCREATITIS [None]
